FAERS Safety Report 17633097 (Version 1)
Quarter: 2020Q2

REPORT INFORMATION
  Report Type: Spontaneous
  Country: US (occurrence: US)
  Receive Date: 20200406
  Receipt Date: 20200406
  Transmission Date: 20200713
  Serious: No
  Sender: FDA-Public Use
  Company Number: US-SA-2020SA081050

PATIENT
  Age: 75 Year
  Sex: Female

DRUGS (2)
  1. LANTUS SOLOSTAR [Suspect]
     Active Substance: INSULIN GLARGINE
     Indication: TYPE 2 DIABETES MELLITUS
     Dosage: 38 IU, QD
     Dates: start: 2007
  2. LANTUS SOLOSTAR [Suspect]
     Active Substance: INSULIN GLARGINE
     Dosage: IF HER BLOOD SUGAR LEVEL IS OVER 150 SHE GOES UP 1 UNIT AND IF IT IS UNDER 150 SHE GOES DOWN 1 UNIT

REACTIONS (2)
  - Memory impairment [Unknown]
  - Treatment noncompliance [Unknown]
